FAERS Safety Report 9119759 (Version 2)
Quarter: 2013Q4

REPORT INFORMATION
  Report Type: Spontaneous
  Country: GB (occurrence: GB)
  Receive Date: 20130207
  Receipt Date: 20131002
  Transmission Date: 20140711
  Serious: Yes (Other)
  Sender: FDA-Public Use
  Company Number: PHHY2013GB009490

PATIENT
  Age: 41 Year
  Sex: Female
  Weight: 70 kg

DRUGS (6)
  1. SERTRALINE [Suspect]
     Indication: POST-TRAUMATIC STRESS DISORDER
     Dosage: 50 MG, DAILY
     Route: 048
     Dates: start: 20110807
  2. SERTRALINE [Suspect]
     Indication: DEPRESSION
     Dosage: 100 MG, DAILY
     Route: 048
     Dates: end: 20111007
  3. SERTRALINE [Suspect]
     Dosage: 150 MG, DAILY
     Route: 048
     Dates: start: 20111008, end: 20111108
  4. SERTRALINE [Suspect]
     Dosage: 100 MG, DAILY
     Route: 048
     Dates: start: 20111109, end: 20111117
  5. SERTRALINE [Suspect]
     Dosage: 50 MG, DAILY
     Route: 048
     Dates: start: 20111118, end: 20111201
  6. SERTRALINE [Suspect]
     Dosage: 50MG / 100 MG / 150 MG PER DAY SEE ATTACHED
     Route: 048
     Dates: start: 20110807

REACTIONS (13)
  - Asphyxia [Recovered/Resolved]
  - Cough [Recovered/Resolved]
  - Pain [Unknown]
  - Dyspnoea [Recovered/Resolved]
  - Dry mouth [Unknown]
  - Decreased appetite [Unknown]
  - Weight decreased [Unknown]
  - Poor quality sleep [Recovered/Resolved]
  - Emotional distress [Recovered/Resolved]
  - Nightmare [Unknown]
  - Drug ineffective [Unknown]
  - Epistaxis [Unknown]
  - Urinary incontinence [Unknown]
